FAERS Safety Report 16656851 (Version 2)
Quarter: 2020Q3

REPORT INFORMATION
  Report Type: Report from Study
  Country: US (occurrence: US)
  Receive Date: 20190801
  Receipt Date: 20200708
  Transmission Date: 20201102
  Serious: Yes (Hospitalization, Other)
  Sender: FDA-Public Use
  Company Number: US-ALEXION PHARMACEUTICALS INC.-A201911373

PATIENT
  Sex: Female

DRUGS (2)
  1. STRENSIQ [Suspect]
     Active Substance: ASFOTASE ALFA
     Indication: HYPOPHOSPHATASIA
     Dosage: UNK
     Route: 058
  2. STRENSIQ [Suspect]
     Active Substance: ASFOTASE ALFA
     Dosage: UNK
     Route: 065

REACTIONS (6)
  - Hyper IgM syndrome [Unknown]
  - Ankle operation [Unknown]
  - Idiopathic intracranial hypertension [Unknown]
  - Chronic inflammatory demyelinating polyradiculoneuropathy [Unknown]
  - Epilepsy [Not Recovered/Not Resolved]
  - Post procedural discomfort [Unknown]

NARRATIVE: CASE EVENT DATE: 20190723
